FAERS Safety Report 19402276 (Version 1)
Quarter: 2021Q2

REPORT INFORMATION
  Report Type: Spontaneous
  Country: US (occurrence: US)
  Receive Date: 20210610
  Receipt Date: 20210610
  Transmission Date: 20210717
  Serious: No
  Sender: FDA-Public Use
  Company Number: US-COLLEGIUM PHARMACEUTICAL, INC.-2020CGM00432

PATIENT
  Age: 52 Year
  Sex: Female
  Weight: 90.7 kg

DRUGS (2)
  1. XTAMPZA ER [Suspect]
     Active Substance: OXYCODONE
     Indication: PAIN
     Dosage: 13.5 MG, 2X/DAY (EVERY 12 HOURS)
     Route: 048
     Dates: start: 20201125, end: 20201125
  2. UNSPECIFIED VITAMINS [Concomitant]
     Active Substance: VITAMINS

REACTIONS (3)
  - Paraesthesia [Not Recovered/Not Resolved]
  - Headache [Not Recovered/Not Resolved]
  - Pruritus [Not Recovered/Not Resolved]

NARRATIVE: CASE EVENT DATE: 20201125
